FAERS Safety Report 6158042-4 (Version None)
Quarter: 2009Q2

REPORT INFORMATION
  Report Type: 
  Country: None (occurrence: None)
  Receive Date: 20090417
  Receipt Date: 20090414
  Transmission Date: 20091009
  Serious: Yes (Hospitalization)
  Sender: FDA-Public Use
  Company Number: US-B.I. PHARMACEUTICALS,INC./RIDGEFIELD-2008-BP-11285BP

PATIENT
  Sex: Female

DRUGS (7)
  1. MICARDIS [Suspect]
     Indication: HYPERTENSION
     Route: 048
     Dates: start: 20081001
  2. MICARDIS [Suspect]
     Dosage: 10MG
     Route: 048
     Dates: start: 20070101, end: 20081001
  3. LIPITOR [Suspect]
     Indication: BLOOD CHOLESTEROL
     Dosage: 40MG
     Route: 048
     Dates: start: 20061006
  4. TOPROL-XL [Suspect]
     Indication: CARDIAC DISORDER
     Dosage: 25MG
     Route: 048
     Dates: start: 20061006
  5. TOPROL-XL [Suspect]
     Indication: BLOOD PRESSURE
  6. ASPIRIN [Suspect]
     Indication: MYOCARDIAL INFARCTION
     Dosage: 81MG
     Route: 048
     Dates: start: 20061006
  7. PLAVIX [Suspect]
     Indication: MYOCARDIAL INFARCTION
     Route: 048
     Dates: start: 20061006, end: 20081001

REACTIONS (8)
  - ALANINE AMINOTRANSFERASE INCREASED [None]
  - BLOOD ALKALINE PHOSPHATASE INCREASED [None]
  - BLOOD UREA INCREASED [None]
  - FAECES DISCOLOURED [None]
  - FATIGUE [None]
  - GASTROINTESTINAL HAEMORRHAGE [None]
  - HAEMOGLOBIN DECREASED [None]
  - TINNITUS [None]
